FAERS Safety Report 4553386-1 (Version None)
Quarter: 2005Q1

REPORT INFORMATION
  Report Type: 
  Country: None (occurrence: None)
  Receive Date: 20050112
  Receipt Date: 20050104
  Transmission Date: 20050727
  Serious: No
  Sender: FDA-Public Use
  Company Number: 2005GB00014

PATIENT
  Age: 76 Year
  Sex: Male

DRUGS (10)
  1. LISINOPRIL [Suspect]
     Indication: DIABETES MELLITUS NON-INSULIN-DEPENDENT
     Dosage: 20 MG DAILY PO
     Route: 048
     Dates: end: 20041203
  2. LISINOPRIL [Suspect]
     Indication: HYPERTENSION
     Dosage: 20 MG DAILY PO
     Route: 048
     Dates: end: 20041203
  3. LISINOPRIL [Suspect]
     Indication: MYOCARDIAL ISCHAEMIA
     Dosage: 20 MG DAILY PO
     Route: 048
     Dates: end: 20041203
  4. METFORMIN HCL [Concomitant]
  5. BISOPROLOL FUMARATE [Concomitant]
  6. DOXAZOSIN [Concomitant]
  7. ROSIGLITAZONE [Concomitant]
  8. ATORVASTATIN [Concomitant]
  9. ASPIRIN [Concomitant]
  10. QUININE [Concomitant]

REACTIONS (3)
  - CONFUSIONAL STATE [None]
  - HYPONATRAEMIA [None]
  - PARTIAL SEIZURES [None]
